FAERS Safety Report 6564477-8 (Version None)
Quarter: 2010Q1

REPORT INFORMATION
  Report Type: 
  Country: None (occurrence: None)
  Receive Date: 20100201
  Receipt Date: 20100122
  Transmission Date: 20100710
  Serious: Yes (Hospitalization)
  Sender: FDA-Public Use
  Company Number: DK-ASTRAZENECA-2010SE03250

PATIENT
  Sex: Male

DRUGS (2)
  1. ENTOCORT EC [Suspect]
     Indication: CROHN'S DISEASE
     Route: 048
     Dates: start: 20020801, end: 20021001
  2. ENTOCORT EC [Suspect]
     Route: 048
     Dates: start: 20021001, end: 20030201

REACTIONS (1)
  - BONE DENSITY DECREASED [None]
